FAERS Safety Report 5196014-7 (Version None)
Quarter: 2006Q4

REPORT INFORMATION
  Report Type: 
  Country: None (occurrence: None)
  Receive Date: 20061227
  Receipt Date: 20061227
  Transmission Date: 20070319
  Serious: Yes (Hospitalization)
  Sender: FDA-Public Use
  Company Number: None

PATIENT
  Sex: Female
  Weight: 49.8957 kg

DRUGS (1)
  1. LAMICTAL [Suspect]
     Dosage: 25 MG 1 QD ORAL
     Route: 048
     Dates: start: 20061210

REACTIONS (1)
  - MYOCARDIAL INFARCTION [None]
